FAERS Safety Report 20394514 (Version 2)
Quarter: 2022Q1

REPORT INFORMATION
  Report Type: Spontaneous
  Country: IT (occurrence: IT)
  Receive Date: 20220129
  Receipt Date: 20220201
  Transmission Date: 20220423
  Serious: Yes (Hospitalization, Other)
  Sender: FDA-Public Use
  Company Number: IT-NOVARTISPH-NVSC2022IT015417

PATIENT
  Age: 13 Year
  Sex: Female
  Weight: 48 kg

DRUGS (4)
  1. IBUPROFEN [Suspect]
     Active Substance: IBUPROFEN
     Indication: Drug abuse
     Dosage: 1 DOSAGE FORM TOTAL
     Route: 048
     Dates: start: 20210131, end: 20210131
  2. ACETAMINOPHEN [Suspect]
     Active Substance: ACETAMINOPHEN
     Indication: Drug abuse
     Dosage: 11 G, QD
     Route: 048
     Dates: start: 20210131, end: 20210131
  3. DIHYDROCODEINE [Suspect]
     Active Substance: DIHYDROCODEINE
     Indication: Drug abuse
     Dosage: 20 DRP QD(DROP (1/12 MILLILITRE), QD 12.25 MG/ML ORAL DROPS, SOLUTION AT DOSE OF 20 GTT
     Route: 048
     Dates: start: 20210131, end: 20210131
  4. BUTYLSCOPOLAMINE BROMIDE [Suspect]
     Active Substance: BUTYLSCOPOLAMINE BROMIDE
     Indication: Drug abuse
     Dosage: 3 DOSAGE FORM
     Route: 048
     Dates: start: 20210131, end: 20210131

REACTIONS (4)
  - Malaise [Recovered/Resolved]
  - Intentional self-injury [Recovered/Resolved]
  - Drug abuse [Unknown]
  - Vomiting [Recovered/Resolved]

NARRATIVE: CASE EVENT DATE: 20210131
